FAERS Safety Report 11837267 (Version 1)
Quarter: 2015Q4

REPORT INFORMATION
  Report Type: Spontaneous
  Country: US (occurrence: US)
  Receive Date: 20151215
  Receipt Date: 20151215
  Transmission Date: 20160305
  Serious: Yes (Hospitalization)
  Sender: FDA-Public Use
  Company Number: US-PFIZER INC-2015368436

PATIENT
  Age: 56 Year
  Sex: Female
  Weight: 57 kg

DRUGS (4)
  1. LYRICA [Suspect]
     Active Substance: PREGABALIN
     Indication: PAIN
     Dosage: 75 MG, 2X/DAY
     Route: 048
     Dates: start: 2015
  2. LYRICA [Suspect]
     Active Substance: PREGABALIN
     Dosage: 150 MG, 3X/DAY
     Route: 048
     Dates: start: 2015
  3. FENTANYL. [Suspect]
     Active Substance: FENTANYL
     Indication: PAIN
     Dosage: 50 UG, UNK (PATCH, CHANGE EVERY THREE DAYS)
     Route: 062
  4. LYRICA [Suspect]
     Active Substance: PREGABALIN
     Indication: FIBROMYALGIA
     Dosage: 125 MG, 3X/DAY
     Route: 048

REACTIONS (8)
  - Bronchitis [Recovering/Resolving]
  - Drug ineffective [Unknown]
  - Peripheral swelling [Recovering/Resolving]
  - Weight increased [Unknown]
  - Blood potassium decreased [Not Recovered/Not Resolved]
  - Increased appetite [Unknown]
  - Diarrhoea [Unknown]
  - Therapeutic response unexpected [Unknown]

NARRATIVE: CASE EVENT DATE: 2015
